FAERS Safety Report 5988617-4 (Version None)
Quarter: 2008Q4

REPORT INFORMATION
  Report Type: 
  Country: None (occurrence: None)
  Receive Date: 20081204
  Receipt Date: 20081119
  Transmission Date: 20090506
  Serious: Yes (Death)
  Sender: FDA-Public Use
  Company Number: 2008S1020898

PATIENT
  Age: 56 Year
  Sex: Male
  Weight: 100 kg

DRUGS (12)
  1. LISINOPRIL [Suspect]
     Indication: HYPERTENSION
     Dosage: 20 MG; ONCE; ORAL
     Route: 048
     Dates: start: 20060313, end: 20081028
  2. . [Concomitant]
  3. . [Concomitant]
  4. ATORVASTATIN CALCIUM [Suspect]
     Indication: HYPERCHOLESTEROLAEMIA
     Dosage: 40 MG, ONCE
     Dates: start: 20061220
  5. BENDROFLUMETHIAZIDE (BENDROFLUMETHIAZIDE) [Suspect]
     Indication: HYPERTENSION
     Dosage: 2.5 MG; ONCE; ORAL
     Route: 048
     Dates: start: 20030214, end: 20081028
  6. ADIZEM-XL [Concomitant]
  7. ASPIRIN [Concomitant]
  8. NITROGLYCERIN [Concomitant]
  9. METFORMIN HCL [Concomitant]
  10. NICORANDIL [Concomitant]
  11. NICORANDIL [Suspect]
  12. SOLFENACIN [Concomitant]

REACTIONS (2)
  - MULTI-ORGAN FAILURE [None]
  - PANCREATITIS ACUTE [None]
